FAERS Safety Report 21600844 (Version 2)
Quarter: 2022Q4

REPORT INFORMATION
  Report Type: Spontaneous
  Country: US (occurrence: US)
  Receive Date: 20221116
  Receipt Date: 20221207
  Transmission Date: 20230113
  Serious: No
  Sender: FDA-Public Use
  Company Number: US-ORGANON-O2210USA001851

PATIENT
  Age: 35 Year
  Sex: Female
  Weight: 151.93 kg

DRUGS (1)
  1. NEXPLANON [Suspect]
     Active Substance: ETONOGESTREL
     Indication: Contraception
     Dosage: 1 IMPLANT OF 68 MILLIGRAM
     Route: 059
     Dates: start: 20210804, end: 20221020

REACTIONS (3)
  - Intermenstrual bleeding [Unknown]
  - Device kink [Recovered/Resolved]
  - Device breakage [Recovered/Resolved]

NARRATIVE: CASE EVENT DATE: 20221020
